FAERS Safety Report 21966890 (Version 1)
Quarter: 2023Q1

REPORT INFORMATION
  Report Type: Other
  Country: CA (occurrence: CA)
  Receive Date: 20230208
  Receipt Date: 20230208
  Transmission Date: 20230418
  Serious: Yes (Death)
  Sender: FDA-Public Use
  Company Number: CA-PFIZER INC-202300059030

PATIENT
  Age: 76 Year
  Sex: Female

DRUGS (10)
  1. AZITHROMYCIN [Suspect]
     Active Substance: AZITHROMYCIN
     Indication: Systemic infection
     Dosage: UNK
     Route: 065
  2. AZITHROMYCIN [Suspect]
     Active Substance: AZITHROMYCIN
     Indication: Atypical mycobacterial infection
  3. LINEZOLID [Suspect]
     Active Substance: LINEZOLID
     Indication: Systemic infection
     Dosage: UNK
     Route: 065
  4. LINEZOLID [Suspect]
     Active Substance: LINEZOLID
     Indication: Atypical mycobacterial infection
  5. AMIKACIN [Suspect]
     Active Substance: AMIKACIN
     Indication: Systemic infection
     Dosage: UNK
  6. AMIKACIN [Suspect]
     Active Substance: AMIKACIN
     Indication: Atypical mycobacterial infection
  7. MOXIFLOXACIN [Suspect]
     Active Substance: MOXIFLOXACIN
     Indication: Systemic infection
     Dosage: UNK
     Route: 065
  8. MOXIFLOXACIN [Suspect]
     Active Substance: MOXIFLOXACIN
     Indication: Atypical mycobacterial infection
  9. RIFAMPIN [Suspect]
     Active Substance: RIFAMPIN
     Indication: Systemic infection
     Dosage: UNK
     Route: 065
  10. RIFAMPIN [Suspect]
     Active Substance: RIFAMPIN
     Indication: Atypical mycobacterial infection

REACTIONS (1)
  - Drug ineffective [Fatal]
